FAERS Safety Report 5667244-2 (Version None)
Quarter: 2008Q1

REPORT INFORMATION
  Report Type: 
  Country: None (occurrence: None)
  Receive Date: 20080315
  Receipt Date: 20080115
  Transmission Date: 20080703
  Serious: No
  Sender: FDA-Public Use
  Company Number: US-ABBOTT-08P-163-0433763-00

PATIENT
  Sex: Female
  Weight: 83.99 kg

DRUGS (13)
  1. HUMIRA [Suspect]
     Indication: RHEUMATOID ARTHRITIS
     Route: 058
  2. METHOTREXATE [Concomitant]
     Indication: RHEUMATOID ARTHRITIS
  3. MELOXICAM [Concomitant]
     Indication: RHEUMATOID ARTHRITIS
  4. LANSOPRAZOLE [Concomitant]
     Indication: DYSPEPSIA
  5. LEVOTHYROXINE SODIUM [Concomitant]
     Indication: THYROIDECTOMY
  6. ATENOLOL [Concomitant]
     Indication: HYPERTENSION
  7. RALOXIFENE HYDROCHLORIDE [Concomitant]
     Indication: OSTEOPOROSIS PROPHYLAXIS
  8. PREGABALIN [Concomitant]
     Indication: NERVE INJURY
  9. PREGABALIN [Concomitant]
     Indication: HERPES ZOSTER
  10. VITAMINS [Concomitant]
     Indication: VITAMIN SUPPLEMENTATION
  11. FOLIC ACID [Concomitant]
     Indication: ALOPECIA
  12. FISH OIL [Concomitant]
     Indication: SUPPLEMENTATION THERAPY
  13. EZETIMIBE [Concomitant]
     Indication: BLOOD CHOLESTEROL INCREASED

REACTIONS (1)
  - INJECTION SITE PAIN [None]
